FAERS Safety Report 5392678-3 (Version None)
Quarter: 2007Q3

REPORT INFORMATION
  Report Type: 
  Country: None (occurrence: None)
  Receive Date: 20070720
  Receipt Date: 20070712
  Transmission Date: 20080115
  Serious: Yes (Hospitalization)
  Sender: FDA-Public Use
  Company Number: DK-ABBOTT-07P-044-0374467-00

PATIENT
  Sex: Female

DRUGS (3)
  1. HUMIRA [Suspect]
     Indication: RHEUMATOID ARTHRITIS
     Dates: start: 20070223, end: 20070622
  2. HUMIRA [Suspect]
     Route: 058
     Dates: start: 20061004, end: 20070110
  3. SULFASALAZINE [Concomitant]
     Indication: DRUG USE FOR UNKNOWN INDICATION
     Dates: start: 20061004, end: 20070110

REACTIONS (2)
  - OVARIAN CANCER [None]
  - PERITONEAL CARCINOMA [None]
